FAERS Safety Report 6501611-X (Version None)
Quarter: 2009Q4

REPORT INFORMATION
  Report Type: 
  Country: None (occurrence: None)
  Receive Date: 20091214
  Receipt Date: 20091214
  Transmission Date: 20100525
  Serious: Yes (Hospitalization)
  Sender: FDA-Public Use
  Company Number: None

PATIENT
  Sex: Male
  Weight: 86.1834 kg

DRUGS (1)
  1. AVASTIN [Suspect]
     Indication: NON-SMALL CELL LUNG CANCER
     Dosage: 1453 MG EVERY 4 WEEKS IV DRIP
     Route: 041
     Dates: start: 20090409, end: 20091006

REACTIONS (5)
  - CONVULSION [None]
  - HYPERTENSION [None]
  - ISCHAEMIA [None]
  - POST PROCEDURAL COMPLICATION [None]
  - RENAL FAILURE [None]
